FAERS Safety Report 21951757 (Version 2)
Quarter: 2023Q1

REPORT INFORMATION
  Report Type: Spontaneous
  Country: US (occurrence: US)
  Receive Date: 20230203
  Receipt Date: 20230220
  Transmission Date: 20230417
  Serious: Yes (Hospitalization)
  Sender: FDA-Public Use
  Company Number: US-ELI_LILLY_AND_COMPANY-US202301012921

PATIENT
  Sex: Male

DRUGS (10)
  1. LYUMJEV KWIKPEN [Suspect]
     Active Substance: INSULIN LISPRO
     Indication: Type 2 diabetes mellitus
     Dosage: 100 U, UNKNOWN
     Route: 058
     Dates: start: 202210
  2. LYUMJEV KWIKPEN [Suspect]
     Active Substance: INSULIN LISPRO
     Indication: Type 2 diabetes mellitus
     Dosage: 100 U, UNKNOWN
     Route: 058
     Dates: start: 202210
  3. LYUMJEV KWIKPEN [Suspect]
     Active Substance: INSULIN LISPRO
     Indication: Type 2 diabetes mellitus
     Dosage: 100 U, UNKNOWN
     Route: 058
     Dates: start: 202210
  4. LYUMJEV KWIKPEN [Suspect]
     Active Substance: INSULIN LISPRO
     Indication: Latent autoimmune diabetes in adults
     Dosage: 100 U, UNKNOWN
     Route: 058
  5. LYUMJEV KWIKPEN [Suspect]
     Active Substance: INSULIN LISPRO
     Indication: Latent autoimmune diabetes in adults
     Dosage: 100 U, UNKNOWN
     Route: 058
  6. LYUMJEV KWIKPEN [Suspect]
     Active Substance: INSULIN LISPRO
     Indication: Latent autoimmune diabetes in adults
     Dosage: 100 U, UNKNOWN
     Route: 058
  7. TRULICITY [Suspect]
     Active Substance: DULAGLUTIDE
     Indication: Type 2 diabetes mellitus
     Dosage: 0.75 MG, UNKNOWN
     Route: 058
     Dates: start: 202210
  8. TRULICITY [Suspect]
     Active Substance: DULAGLUTIDE
     Indication: Latent autoimmune diabetes in adults
     Dosage: 3 MG, UNKNOWN
     Route: 058
     Dates: end: 202212
  9. TRESIBA [Concomitant]
     Active Substance: INSULIN DEGLUDEC
     Indication: Type 2 diabetes mellitus
  10. LANTUS [Concomitant]
     Active Substance: INSULIN GLARGINE
     Indication: Type 2 diabetes mellitus

REACTIONS (8)
  - Haematological infection [Unknown]
  - Localised infection [Unknown]
  - Dysuria [Recovered/Resolved]
  - Mobility decreased [Recovered/Resolved]
  - Faeces hard [Recovered/Resolved]
  - Constipation [Recovered/Resolved]
  - Abdominal discomfort [Unknown]
  - Decreased appetite [Unknown]
